FAERS Safety Report 6803396-6 (Version None)
Quarter: 2010Q2

REPORT INFORMATION
  Report Type: 
  Country: None (occurrence: None)
  Receive Date: 20100628
  Receipt Date: 20100615
  Transmission Date: 20101027
  Serious: Yes (Hospitalization)
  Sender: FDA-Public Use
  Company Number: DE-ROCHE-709587

PATIENT
  Sex: Female
  Weight: 80 kg

DRUGS (6)
  1. TRASTUZUMAB [Suspect]
     Indication: BREAST CANCER
     Dosage: FORM: INFUSION, FREQUENCY NOT REPORTED, LAST DOSE PRIOR TO SAE: 10 JUN 2010, CYCLE 1.
     Route: 042
     Dates: start: 20100610
  2. EPIRUBICIN [Suspect]
     Indication: BREAST CANCER
     Dosage: FORM: INFUSION, FREQUENCY NOT REPORTED, LAST DOSE PRIOR TO SAE: 10 JUN 2010, CYCLE 1
     Route: 042
     Dates: start: 20100610
  3. CYCLOPHOSPHAMIDE [Suspect]
     Indication: BREAST CANCER
     Dosage: FORM: INFUSION, FREQUENCY NOT REPORTED, LAST DOSE PRIOR TO SAE: 10 JUN 2010, CYCLE 1
     Route: 042
     Dates: start: 20100610
  4. IVEMEND [Concomitant]
     Dates: start: 20100610, end: 20100610
  5. FORTECORTIN [Concomitant]
     Dates: start: 20100610, end: 20100610
  6. KEVATRIL [Concomitant]
     Dates: start: 20100610, end: 20100610

REACTIONS (1)
  - CARDIOVASCULAR DISORDER [None]
